FAERS Safety Report 26191459 (Version 1)
Quarter: 2025Q4

REPORT INFORMATION
  Report Type: Spontaneous
  Country: US (occurrence: US)
  Receive Date: 20251223
  Receipt Date: 20251223
  Transmission Date: 20260118
  Serious: Yes (Other)
  Sender: SHILPA MEDICARE LIMITED
  Company Number: US-KOANAAP-SML-US-2025-0011

PATIENT
  Age: 63 Year
  Sex: Male

DRUGS (6)
  1. AZACITIDINE [Suspect]
     Active Substance: AZACITIDINE
     Indication: Acute myeloid leukaemia
  2. AZACITIDINE [Suspect]
     Active Substance: AZACITIDINE
  3. IVOSIDENIB [Suspect]
     Active Substance: IVOSIDENIB
     Indication: Acute myeloid leukaemia
  4. IVOSIDENIB [Suspect]
     Active Substance: IVOSIDENIB
  5. VENETOCLAX [Suspect]
     Active Substance: VENETOCLAX
     Indication: Acute myeloid leukaemia
  6. VENETOCLAX [Suspect]
     Active Substance: VENETOCLAX

REACTIONS (2)
  - Treatment failure [Unknown]
  - Cytopenia [Unknown]
